FAERS Safety Report 17614645 (Version 8)
Quarter: 2020Q3

REPORT INFORMATION
  Report Type: Report from Study
  Country: US (occurrence: US)
  Receive Date: 20200402
  Receipt Date: 20200702
  Transmission Date: 20201102
  Serious: No
  Sender: FDA-Public Use
  Company Number: NVSC2020US084260

PATIENT
  Sex: Female

DRUGS (2)
  1. COSENTYX [Suspect]
     Active Substance: SECUKINUMAB
     Indication: PSORIASIS
     Route: 058
  2. COSENTYX [Suspect]
     Active Substance: SECUKINUMAB
     Indication: PSORIASIS
     Dosage: 150 MG, QW
     Route: 058

REACTIONS (12)
  - Coronavirus infection [Recovered/Resolved]
  - Middle insomnia [Unknown]
  - Fatigue [Unknown]
  - Sleep disorder [Unknown]
  - Psoriasis [Unknown]
  - Feeling hot [Unknown]
  - Hypersensitivity [Unknown]
  - Pyrexia [Recovered/Resolved]
  - Nasal congestion [Unknown]
  - Nausea [Unknown]
  - Cough [Unknown]
  - Night sweats [Unknown]
